FAERS Safety Report 9842563 (Version 1)
Quarter: 2014Q1

REPORT INFORMATION
  Report Type: Spontaneous
  Country: US (occurrence: US)
  Receive Date: 20140124
  Receipt Date: 20140124
  Transmission Date: 20141002
  Serious: No
  Sender: FDA-Public Use
  Company Number: US-GILEAD-2011-0047860

PATIENT
  Sex: Female

DRUGS (3)
  1. RANEXA [Suspect]
     Indication: PRODUCT USED FOR UNKNOWN INDICATION
     Dosage: UNK
     Route: 048
     Dates: start: 201111
  2. LAMICTAL [Concomitant]
     Indication: BIPOLAR DISORDER
  3. GEODON                             /01487002/ [Concomitant]
     Indication: BIPOLAR DISORDER

REACTIONS (1)
  - Ataxia [Recovered/Resolved]
